FAERS Safety Report 24057199 (Version 1)
Quarter: 2024Q3

REPORT INFORMATION
  Report Type: Report from Study
  Country: ZA (occurrence: ZA)
  Receive Date: 20240706
  Receipt Date: 20240706
  Transmission Date: 20241016
  Serious: Yes (Other)
  Sender: AMGEN
  Company Number: ZA-AMGEN-ZAFSL2024128055

PATIENT
  Age: 71 Year
  Sex: Female

DRUGS (1)
  1. VECTIBIX [Suspect]
     Active Substance: PANITUMUMAB
     Indication: Product used for unknown indication
     Dosage: UNK 5 DOSES
     Route: 065
     Dates: start: 202312

REACTIONS (7)
  - Syncope [Unknown]
  - Mobility decreased [Unknown]
  - Muscle disorder [Unknown]
  - Electrolyte imbalance [Unknown]
  - Immune system disorder [Unknown]
  - Nervous system disorder [Unknown]
  - Gait disturbance [Unknown]

NARRATIVE: CASE EVENT DATE: 20240101
